FAERS Safety Report 4669537-4 (Version None)
Quarter: 2005Q2

REPORT INFORMATION
  Report Type: 
  Country: None (occurrence: None)
  Receive Date: 20050520
  Receipt Date: 20050507
  Transmission Date: 20051028
  Serious: Yes (Other)
  Sender: FDA-Public Use
  Company Number: 2005071686

PATIENT
  Age: 18 Year
  Sex: Female
  Weight: 74.8435 kg

DRUGS (1)
  1. DRAMAMINE [Suspect]
     Indication: ACCIDENTAL EXPOSURE
     Dosage: 12 TABLETS ONCE, ORAL
     Route: 048
     Dates: start: 20050507, end: 20050507

REACTIONS (2)
  - ABNORMAL BEHAVIOUR [None]
  - ACCIDENTAL OVERDOSE [None]
